FAERS Safety Report 17798237 (Version 1)
Quarter: 2020Q2

REPORT INFORMATION
  Report Type: Other
  Country: FR (occurrence: FR)
  Receive Date: 20200518
  Receipt Date: 20200518
  Transmission Date: 20200714
  Serious: Yes (Death, Other)
  Sender: FDA-Public Use
  Company Number: FR-ASTELLAS-2020US016587

PATIENT
  Age: 69 Year
  Sex: Female
  Weight: 56 kg

DRUGS (8)
  1. ATORVASTATINE SANDOZ [Concomitant]
     Active Substance: ATORVASTATIN
     Indication: PRODUCT USED FOR UNKNOWN INDICATION
     Dosage: UNK UNK, UNKNOWN FREQ.
     Route: 065
  2. PROGRAF [Suspect]
     Active Substance: TACROLIMUS
     Indication: RENAL TRANSPLANT
     Dosage: UNK UNK, UNKNOWN FREQ.
     Route: 048
     Dates: start: 2011, end: 20200401
  3. CEFTRIAXONE [CEFTRIAXONE SODIUM] [Interacting]
     Active Substance: CEFTRIAXONE SODIUM
     Indication: OPPORTUNISTIC INFECTION PROPHYLAXIS
     Route: 041
     Dates: start: 20200328, end: 20200404
  4. SERESTA [Concomitant]
     Active Substance: OXAZEPAM
     Indication: PRODUCT USED FOR UNKNOWN INDICATION
     Dosage: UNK UNK, UNKNOWN FREQ.
     Route: 065
  5. LOVENOX [Concomitant]
     Active Substance: ENOXAPARIN SODIUM
     Indication: PRODUCT USED FOR UNKNOWN INDICATION
     Dosage: UNK UNK, UNKNOWN FREQ.
     Route: 065
  6. ROVAMYCINE [SPIRAMYCIN ADEPATE] [Interacting]
     Active Substance: SPIRAMYCIN ADIPATE
     Indication: OPPORTUNISTIC INFECTION PROPHYLAXIS
     Route: 048
     Dates: start: 20200330, end: 20200406
  7. NEBIVOLOL SANDOZ [Concomitant]
     Active Substance: NEBIVOLOL
     Indication: PRODUCT USED FOR UNKNOWN INDICATION
     Dosage: UNK UNK, UNKNOWN FREQ. (DOUBLE SCORED TABLET)
     Route: 065
  8. CORTANCYL [Concomitant]
     Active Substance: PREDNISONE
     Indication: PRODUCT USED FOR UNKNOWN INDICATION
     Dosage: UNK UNK, UNKNOWN FREQ.
     Route: 065

REACTIONS (9)
  - Thrombocytopenia [Fatal]
  - Respiratory disorder [Fatal]
  - Immunosuppressant drug level increased [Recovered/Resolved]
  - Coronavirus infection [Fatal]
  - Thrombotic microangiopathy [Fatal]
  - Acute kidney injury [Recovered/Resolved]
  - Superinfection bacterial [Unknown]
  - Anaemia [Fatal]
  - Drug interaction [Unknown]

NARRATIVE: CASE EVENT DATE: 20200331
